FAERS Safety Report 25450393 (Version 2)
Quarter: 2025Q2

REPORT INFORMATION
  Report Type: Spontaneous
  Country: BR (occurrence: BR)
  Receive Date: 20250618
  Receipt Date: 20250624
  Transmission Date: 20250717
  Serious: Yes (Other)
  Sender: MYLAN
  Company Number: BR-MYLANLABS-2025M1050491

PATIENT
  Sex: Female
  Weight: 7 kg

DRUGS (16)
  1. ZOLOFT [Suspect]
     Active Substance: SERTRALINE HYDROCHLORIDE
     Indication: Product used for unknown indication
  2. ZOLOFT [Suspect]
     Active Substance: SERTRALINE HYDROCHLORIDE
  3. ZOLOFT [Suspect]
     Active Substance: SERTRALINE HYDROCHLORIDE
     Route: 064
  4. ZOLOFT [Suspect]
     Active Substance: SERTRALINE HYDROCHLORIDE
     Route: 064
  5. ZOLOFT [Suspect]
     Active Substance: SERTRALINE HYDROCHLORIDE
  6. ZOLOFT [Suspect]
     Active Substance: SERTRALINE HYDROCHLORIDE
  7. ZOLOFT [Suspect]
     Active Substance: SERTRALINE HYDROCHLORIDE
     Route: 063
  8. ZOLOFT [Suspect]
     Active Substance: SERTRALINE HYDROCHLORIDE
     Route: 063
  9. LEVOTHYROXINE [Suspect]
     Active Substance: LEVOTHYROXINE
     Indication: Product used for unknown indication
  10. LEVOTHYROXINE [Suspect]
     Active Substance: LEVOTHYROXINE
  11. LEVOTHYROXINE [Suspect]
     Active Substance: LEVOTHYROXINE
     Route: 064
  12. LEVOTHYROXINE [Suspect]
     Active Substance: LEVOTHYROXINE
     Route: 064
  13. LEVOTHYROXINE [Suspect]
     Active Substance: LEVOTHYROXINE
  14. LEVOTHYROXINE [Suspect]
     Active Substance: LEVOTHYROXINE
  15. LEVOTHYROXINE [Suspect]
     Active Substance: LEVOTHYROXINE
     Route: 063
  16. LEVOTHYROXINE [Suspect]
     Active Substance: LEVOTHYROXINE
     Route: 063

REACTIONS (3)
  - Milk allergy [Not Recovered/Not Resolved]
  - Foetal exposure during pregnancy [Recovered/Resolved]
  - Exposure via breast milk [Not Recovered/Not Resolved]

NARRATIVE: CASE EVENT DATE: 20240101
